FAERS Safety Report 7030481-9 (Version None)
Quarter: 2010Q4

REPORT INFORMATION
  Report Type: 
  Country: None (occurrence: None)
  Receive Date: 20101006
  Receipt Date: 20100927
  Transmission Date: 20110411
  Serious: Yes (Other)
  Sender: FDA-Public Use
  Company Number: JP-ABBOTT-10P-087-0666761-00

PATIENT
  Sex: Male

DRUGS (3)
  1. KLARICID TABLETS [Suspect]
     Indication: ENTEROCOLITIS BACTERIAL
     Route: 048
     Dates: start: 20100817, end: 20100819
  2. PRIMPERAN TAB [Concomitant]
     Indication: ENTEROCOLITIS
     Route: 048
     Dates: start: 20100817, end: 20100819
  3. CLORTRIDIUM BUTYRICUM COMBINED DRUG (BIO-THREE) [Concomitant]
     Indication: ENTEROCOLITIS
     Route: 048
     Dates: start: 20100817, end: 20100819

REACTIONS (6)
  - ERYTHEMA [None]
  - PHARYNGEAL DISORDER [None]
  - PHARYNGEAL EROSION [None]
  - RASH [None]
  - RASH PAPULAR [None]
  - SUBCORNEAL PUSTULAR DERMATOSIS [None]
